FAERS Safety Report 9084437 (Version 1)
Quarter: 2013Q1

REPORT INFORMATION
  Report Type: Report from Study
  Country: US (occurrence: US)
  Receive Date: 20130129
  Receipt Date: 20130129
  Transmission Date: 20140127
  Serious: No
  Sender: FDA-Public Use
  Company Number: US-ABBOTT-12P-163-0947077-00

PATIENT
  Age: 28 Year
  Sex: Female

DRUGS (1)
  1. HUMIRA 40 MG/0.8 ML PEN [Suspect]
     Indication: CROHN^S DISEASE
     Dosage: ON 31 MAY 2012 AND WAS SUPPOSED TO TAKE 80MG TODAY DEPENDENT ON WHAT HER PHYSICIAN SAYS
     Dates: start: 20120531

REACTIONS (1)
  - Fungal infection [Not Recovered/Not Resolved]
